FAERS Safety Report 22928947 (Version 6)
Quarter: 2023Q4

REPORT INFORMATION
  Report Type: Spontaneous
  Country: PL (occurrence: PL)
  Receive Date: 20230911
  Receipt Date: 20231018
  Transmission Date: 20240110
  Serious: Yes (Hospitalization, Other)
  Sender: FDA-Public Use
  Company Number: PL-MYLANLABS-2023M1092781

PATIENT
  Age: 31 Year
  Sex: Male

DRUGS (25)
  1. SERTRALINE [Interacting]
     Active Substance: SERTRALINE HYDROCHLORIDE
     Indication: Depression
     Dosage: 50 MILLIGRAM, QD (IN MORNING)
     Route: 065
  2. IBUPROFEN [Suspect]
     Active Substance: IBUPROFEN
     Indication: Pain
     Dosage: UNK
     Route: 065
  3. IBUPROFEN [Suspect]
     Active Substance: IBUPROFEN
     Indication: Analgesic therapy
  4. CIPROFLOXACIN [Interacting]
     Active Substance: CIPROFLOXACIN
     Indication: Prostatitis
     Dosage: 500 MILLIGRAM, QD
     Route: 048
  5. CIPROFLOXACIN [Interacting]
     Active Substance: CIPROFLOXACIN
     Indication: Urinary tract infection
     Dosage: 500 MILLIGRAM, BID (TWICE DAILY)
     Route: 048
  6. CIPROFLOXACIN [Interacting]
     Active Substance: CIPROFLOXACIN
     Indication: Prostatic pain
  7. DOXYLAMINE [Interacting]
     Active Substance: DOXYLAMINE
     Indication: Depression
     Dosage: 25 MILLIGRAM, QD AT NIGHT
     Route: 065
  8. ACETAMINOPHEN [Suspect]
     Active Substance: ACETAMINOPHEN
     Indication: Analgesic therapy
     Dosage: UNK
     Route: 065
  9. ACETAMINOPHEN [Suspect]
     Active Substance: ACETAMINOPHEN
     Indication: Pain
  10. METAMIZOLE [Suspect]
     Active Substance: METAMIZOLE
     Indication: Pain
     Dosage: UNK
     Route: 042
  11. METAMIZOLE [Suspect]
     Active Substance: METAMIZOLE
     Indication: Analgesic therapy
  12. DICLOFENAC [Suspect]
     Active Substance: DICLOFENAC
     Indication: Prostatitis
     Dosage: 50 MILLIGRAM, BID (TWICE DAILY)
     Route: 054
  13. DICLOFENAC [Suspect]
     Active Substance: DICLOFENAC
     Indication: Prostatic pain
  14. MELOXICAM [Suspect]
     Active Substance: MELOXICAM
     Indication: Pain
     Dosage: UNK
     Route: 065
  15. MELOXICAM [Suspect]
     Active Substance: MELOXICAM
     Indication: Analgesic therapy
  16. KETAMINE [Concomitant]
     Active Substance: KETAMINE
     Indication: Pain
     Dosage: UNK
     Route: 065
  17. VALPROIC ACID [Concomitant]
     Active Substance: VALPROIC ACID
     Indication: Pain
     Dosage: UNK
     Route: 042
  18. LIDOCAINE HYDROCHLORIDE [Concomitant]
     Active Substance: LIDOCAINE HYDROCHLORIDE
     Indication: Pain
     Dosage: DAILY IN 5 MG/KG BODY WT DOSE IN 30-MIN INFUSION
     Route: 042
  19. DEXAMETHASONE [Concomitant]
     Active Substance: DEXAMETHASONE
     Indication: Pain
     Dosage: UNK
     Route: 042
  20. MAGNESIUM SULFATE [Concomitant]
     Active Substance: MAGNESIUM SULFATE
     Indication: Pain
     Dosage: UNK
     Route: 042
  21. PREGABALIN [Concomitant]
     Active Substance: PREGABALIN
     Dosage: 75 MILLIGRAM
     Route: 065
  22. TRAZODONE [Concomitant]
     Active Substance: TRAZODONE HYDROCHLORIDE
     Dosage: 25 MILLIGRAM
     Route: 065
  23. MILNACIPRAN [Concomitant]
     Active Substance: MILNACIPRAN
     Dosage: 50 MILLIGRAM, QD (50 MG, DAILY)
     Route: 065
  24. ELMIRON [Concomitant]
     Active Substance: PENTOSAN POLYSULFATE SODIUM
     Dosage: 100 MILLIGRAM X 3
     Route: 048
  25. ETORICOXIB [Concomitant]
     Active Substance: ETORICOXIB
     Dosage: 60 MILLIGRAM, QD (60 MG, DAILY)
     Route: 065

REACTIONS (9)
  - Hospitalisation [Unknown]
  - Pain [Recovered/Resolved]
  - Prostatic pain [Recovered/Resolved]
  - Discomfort [Recovered/Resolved]
  - Burning sensation [Recovered/Resolved]
  - Condition aggravated [Recovered/Resolved]
  - Drug ineffective [Unknown]
  - Drug interaction [Unknown]
  - Product use in unapproved indication [Recovered/Resolved]
